FAERS Safety Report 12069966 (Version 1)
Quarter: 2016Q1

REPORT INFORMATION
  Report Type: Spontaneous
  Country: FR (occurrence: FR)
  Receive Date: 20160211
  Receipt Date: 20160211
  Transmission Date: 20160526
  Serious: Yes (Hospitalization)
  Sender: FDA-Public Use
  Company Number: FR-ASTRAZENECA-2016SE12372

PATIENT
  Age: 24361 Day
  Sex: Female

DRUGS (12)
  1. PENTASA [Suspect]
     Active Substance: MESALAMINE
     Indication: RECTAL HAEMORRHAGE
     Dosage: 2 SACHETS AT MORNING
     Route: 048
  2. CIRKAN [Suspect]
     Active Substance: DESONIDE\LIDOCAINE
     Dosage: ON DEMAND
     Route: 048
     Dates: end: 20151119
  3. GLUCOPHAGE [Suspect]
     Active Substance: METFORMIN HYDROCHLORIDE
     Indication: TYPE 2 DIABETES MELLITUS
     Dosage: 850 MG AT MORNING AND NIGHT 500 MG AT NOON, NON AZ PRODUCT
     Route: 048
  4. IMODIUM [Suspect]
     Active Substance: LOPERAMIDE HYDROCHLORIDE
     Indication: DIARRHOEA
     Route: 048
     Dates: end: 20151119
  5. INEXIUM [Suspect]
     Active Substance: ESOMEPRAZOLE
     Route: 048
  6. HEMIDAONIL [Suspect]
     Active Substance: GLYBURIDE
     Indication: TYPE 2 DIABETES MELLITUS
     Route: 048
  7. LOPRESSOR [Suspect]
     Active Substance: METOPROLOL TARTRATE
     Indication: HYPERTENSION
     Route: 048
  8. PENTASA [Suspect]
     Active Substance: MESALAMINE
     Indication: RECTAL HAEMORRHAGE
     Dosage: 2 SACHETS THREE TIMES A DAY
     Route: 048
  9. JANUVIA [Suspect]
     Active Substance: SITAGLIPTIN PHOSPHATE
     Indication: TYPE 2 DIABETES MELLITUS
     Route: 048
  10. SPASFON [Suspect]
     Active Substance: PHLOROGLUCINOL
     Indication: CONSTIPATION
     Dosage: ON DEMAND
     Route: 048
     Dates: end: 20151119
  11. ALDACTONE [Suspect]
     Active Substance: SPIRONOLACTONE
     Indication: HYPERTENSION
     Route: 048
  12. MOXYDAR [Suspect]
     Active Substance: ALUMINUM HYDROXIDE\ALUMINUM PHOSPHATE\GUAR GUM\MAGNESIUM HYDROXIDE
     Dosage: ON DEMAND
     Route: 048
     Dates: end: 20151119

REACTIONS (5)
  - Haemorrhoidal haemorrhage [Unknown]
  - Pernicious anaemia [None]
  - Anaemia [Unknown]
  - Vitamin B12 decreased [Not Recovered/Not Resolved]
  - Pancytopenia [Not Recovered/Not Resolved]

NARRATIVE: CASE EVENT DATE: 20151102
